FAERS Safety Report 7457369-3 (Version None)
Quarter: 2011Q2

REPORT INFORMATION
  Report Type: 
  Country: None (occurrence: None)
  Receive Date: 20110502
  Receipt Date: 20110502
  Transmission Date: 20111010
  Serious: No
  Sender: FDA-Public Use
  Company Number: None

PATIENT

DRUGS (1)
  1. ATIVAN [Suspect]
     Dosage: 1 MG BID P.O.
     Route: 048

REACTIONS (3)
  - PANIC ATTACK [None]
  - PALPITATIONS [None]
  - ANXIETY [None]
